FAERS Safety Report 5410840-8 (Version None)
Quarter: 2007Q3

REPORT INFORMATION
  Report Type: 
  Country: None (occurrence: None)
  Receive Date: 20070810
  Receipt Date: 20070803
  Transmission Date: 20080115
  Serious: Yes (Other)
  Sender: FDA-Public Use
  Company Number: US-JNJFOC-20070801360

PATIENT
  Sex: Female
  Weight: 61.24 kg

DRUGS (2)
  1. ORTHO TRI-CYCLEN [Suspect]
     Indication: ACNE
  2. ORTHO TRI-CYCLEN [Suspect]
     Indication: CONTRACEPTION

REACTIONS (2)
  - DRUG DOSE OMISSION [None]
  - EATING DISORDER [None]
